FAERS Safety Report 5255782-6 (Version None)
Quarter: 2007Q1

REPORT INFORMATION
  Report Type: 
  Country: None (occurrence: None)
  Receive Date: 20070228
  Receipt Date: 20061229
  Transmission Date: 20070707
  Serious: Yes (Death)
  Sender: FDA-Public Use
  Company Number: 2006VX002611

PATIENT
  Age: 80 Year
  Sex: Female

DRUGS (11)
  1. TASMAR [Suspect]
     Indication: PARKINSON'S DISEASE
     Dosage: SEE IMAGE
     Dates: end: 20061120
  2. TASMAR [Suspect]
     Indication: PARKINSON'S DISEASE
     Dosage: SEE IMAGE
     Dates: start: 20061120, end: 20061127
  3. TASMAR [Suspect]
     Indication: PARKINSON'S DISEASE
     Dosage: SEE IMAGE
     Dates: start: 20061128
  4. CANDESARTAN [Concomitant]
  5. BISOPROLOL [Concomitant]
  6. ACETYLSALICYLIC ACID SRT [Concomitant]
  7. CARBIDOPA [Concomitant]
  8. LEVODOPA [Concomitant]
  9. AMANTADINE HCL [Concomitant]
  10. TORESAMIDE [Concomitant]
  11. RASAGILINE [Concomitant]

REACTIONS (23)
  - AGGRESSION [None]
  - AGITATION [None]
  - ARRHYTHMIA [None]
  - ATRIAL FIBRILLATION [None]
  - CARDIOMEGALY [None]
  - CEREBRAL ATROPHY [None]
  - DEMENTIA [None]
  - DISTURBANCE IN ATTENTION [None]
  - DRUG INEFFECTIVE [None]
  - GAMMA-GLUTAMYLTRANSFERASE INCREASED [None]
  - GENERAL PHYSICAL HEALTH DETERIORATION [None]
  - HYPERNATRAEMIA [None]
  - HYPERTENSIVE HEART DISEASE [None]
  - HYPERVENTILATION [None]
  - PLEURAL EFFUSION [None]
  - PULMONARY CONGESTION [None]
  - PYREXIA [None]
  - RALES [None]
  - RENAL CELL CARCINOMA STAGE UNSPECIFIED [None]
  - RENAL FAILURE [None]
  - RESPIRATORY ARREST [None]
  - SEROTONIN SYNDROME [None]
  - TRANSAMINASES INCREASED [None]
